FAERS Safety Report 7536072-5 (Version None)
Quarter: 2011Q2

REPORT INFORMATION
  Report Type: 
  Country: None (occurrence: None)
  Receive Date: 20110607
  Receipt Date: 20110607
  Transmission Date: 20111010
  Serious: Yes (Disabling)
  Sender: FDA-Public Use
  Company Number: None

PATIENT
  Age: 47 Year
  Sex: Male
  Weight: 72.5755 kg

DRUGS (1)
  1. AVELOX [Suspect]
     Indication: PNEUMONIA
     Dosage: 400 MG OD PO
     Route: 048
     Dates: start: 20110330, end: 20110409

REACTIONS (5)
  - PAIN IN EXTREMITY [None]
  - IMPAIRED WORK ABILITY [None]
  - MUSCULOSKELETAL PAIN [None]
  - MYALGIA [None]
  - ARTHRALGIA [None]
